FAERS Safety Report 9508013 (Version 1)
Quarter: 2013Q3

REPORT INFORMATION
  Report Type: Spontaneous
  Country: DE (occurrence: ES)
  Receive Date: 20130909
  Receipt Date: 20130909
  Transmission Date: 20140515
  Serious: Yes (Death, Hospitalization)
  Sender: FDA-Public Use
  Company Number: ES-FRI-1000048479

PATIENT
  Age: 75 Year
  Sex: Male
  Weight: 52 kg

DRUGS (4)
  1. ROFLUMILAST [Suspect]
     Indication: CHRONIC OBSTRUCTIVE PULMONARY DISEASE
     Dosage: 500 MCG QOD
     Route: 048
     Dates: start: 20130607, end: 201306
  2. ONBREZ [Concomitant]
     Dates: start: 20130607
  3. SPIRIVA [Concomitant]
     Dates: start: 2009
  4. ATROVENT [Concomitant]
     Dates: start: 2009

REACTIONS (3)
  - Respiratory disorder [Fatal]
  - Diarrhoea [Recovered/Resolved]
  - Off label use [Recovered/Resolved]
